FAERS Safety Report 17141850 (Version 1)
Quarter: 2019Q4

REPORT INFORMATION
  Report Type: Spontaneous
  Country: US (occurrence: US)
  Receive Date: 20191211
  Receipt Date: 20191211
  Transmission Date: 20200122
  Serious: Yes (Death, Other)
  Sender: FDA-Public Use
  Company Number: US-009507513-1912USA005248

PATIENT
  Age: 58 Year
  Sex: Female

DRUGS (3)
  1. ALCOHOL. [Suspect]
     Active Substance: ALCOHOL
     Dosage: INGESTION+UNKNOWN
     Route: 048
  2. KETAMINE [Suspect]
     Active Substance: KETAMINE
     Dosage: INGESTION+UNKNOWN
     Route: 048
  3. JANUVIA [Suspect]
     Active Substance: SITAGLIPTIN PHOSPHATE
     Dosage: INGESTION+ UNKNOWN
     Route: 048

REACTIONS (2)
  - Suspected suicide [Fatal]
  - Cardio-respiratory arrest [Unknown]
